FAERS Safety Report 9698572 (Version 3)
Quarter: 2013Q4

REPORT INFORMATION
  Report Type: Spontaneous
  Country: JP (occurrence: JP)
  Receive Date: 20131120
  Receipt Date: 20131219
  Transmission Date: 20140711
  Serious: Yes (Hospitalization)
  Sender: FDA-Public Use
  Company Number: JP-GLAXOSMITHKLINE-B0935426A

PATIENT
  Age: 51 Year
  Sex: Female

DRUGS (10)
  1. LAMICTAL [Suspect]
     Indication: BIPOLAR II DISORDER
     Dosage: 25MG ALTERNATE DAYS
     Route: 048
     Dates: start: 20130920, end: 20131008
  2. LAMICTAL [Suspect]
     Indication: BIPOLAR II DISORDER
     Dosage: 25MG PER DAY
     Route: 048
     Dates: start: 20131009, end: 20131016
  3. DEPAKENE-R [Concomitant]
     Route: 048
     Dates: end: 20131013
  4. ROHYPNOL [Concomitant]
     Dosage: 2MG PER DAY
     Route: 048
     Dates: end: 20131013
  5. REMERON [Concomitant]
     Route: 048
     Dates: end: 20131013
  6. WYPAX [Concomitant]
     Route: 048
     Dates: end: 20131013
  7. CALONAL [Concomitant]
     Indication: PYREXIA
     Route: 048
     Dates: start: 20131005
  8. CRAVIT [Concomitant]
     Indication: PYREXIA
     Route: 048
     Dates: start: 20131005, end: 20131014
  9. FLOMOX [Concomitant]
     Indication: PYREXIA
     Route: 048
     Dates: start: 20131009
  10. LOXONIN [Concomitant]
     Indication: PYREXIA
     Route: 048
     Dates: start: 20131009

REACTIONS (5)
  - Urinary tract infection [Unknown]
  - Pyrexia [Recovering/Resolving]
  - Hepatic function abnormal [Recovering/Resolving]
  - Lymphadenopathy [Unknown]
  - Rash generalised [Recovering/Resolving]
